FAERS Safety Report 8001154-0 (Version None)
Quarter: 2011Q4

REPORT INFORMATION
  Report Type: 
  Country: None (occurrence: None)
  Receive Date: 20111220
  Receipt Date: 20111206
  Transmission Date: 20120403
  Serious: Yes (Other)
  Sender: FDA-Public Use
  Company Number: 1000026047

PATIENT
  Age: 55 Year
  Sex: Male

DRUGS (3)
  1. VIIBRYD [Suspect]
     Dosage: 40 MG (40 MG, 1 IN 1 D),
     Dates: start: 20110101
  2. HIV MEDICATION NOS [Concomitant]
  3. NARDIL [Concomitant]

REACTIONS (4)
  - CONFUSIONAL STATE [None]
  - MENTAL STATUS CHANGES [None]
  - HYPERHIDROSIS [None]
  - MYDRIASIS [None]
